FAERS Safety Report 7790093-6 (Version None)
Quarter: 2011Q3

REPORT INFORMATION
  Report Type: 
  Country: None (occurrence: None)
  Receive Date: 20110930
  Receipt Date: 20100913
  Transmission Date: 20111222
  Serious: No
  Sender: FDA-Public Use
  Company Number: US-ASTRAZENECA-2010SE36541

PATIENT
  Sex: Female
  Weight: 61.2 kg

DRUGS (1)
  1. ARIMIDEX [Suspect]
     Route: 048

REACTIONS (3)
  - BLOOD ALCOHOL INCREASED [None]
  - IMPAIRED DRIVING ABILITY [None]
  - HEPATIC ENZYME INCREASED [None]
